FAERS Safety Report 11434443 (Version 2)
Quarter: 2017Q4

REPORT INFORMATION
  Report Type: Report from Study
  Country: ES (occurrence: ES)
  Receive Date: 20150831
  Receipt Date: 20171115
  Transmission Date: 20180320
  Serious: Yes (Other)
  Sender: FDA-Public Use
  Company Number: ES-ROCHE-1628305

PATIENT

DRUGS (1)
  1. SOMATROPIN. [Suspect]
     Active Substance: SOMATROPIN
     Indication: GROWTH HORMONE DEFICIENCY
     Route: 065

REACTIONS (9)
  - Hyperglycaemia [Unknown]
  - Arthralgia [Unknown]
  - Drug ineffective [Unknown]
  - Hypertension [Unknown]
  - Colon cancer [Unknown]
  - Fluid retention [Unknown]
  - Chronic myeloid leukaemia [Unknown]
  - Meningioma [Unknown]
  - Depression [Unknown]
